FAERS Safety Report 4931818-4 (Version None)
Quarter: 2006Q1

REPORT INFORMATION
  Report Type: 
  Country: None (occurrence: None)
  Receive Date: 20060303
  Receipt Date: 20060208
  Transmission Date: 20060701
  Serious: Yes (Hospitalization)
  Sender: FDA-Public Use
  Company Number: 2006CG00295

PATIENT
  Age: 26809 Day
  Sex: Female
  Weight: 54 kg

DRUGS (13)
  1. NEXIUM [Suspect]
     Route: 048
     Dates: start: 20060127, end: 20060205
  2. OMEPRAZOLE [Concomitant]
     Route: 048
     Dates: start: 20051213, end: 20060126
  3. CLAMOXYL [Concomitant]
     Route: 048
     Dates: start: 20060126, end: 20060131
  4. COVERSYL [Concomitant]
     Route: 048
     Dates: start: 20051213
  5. ELISOR [Concomitant]
     Route: 048
     Dates: start: 20051213
  6. KARDEGIC [Concomitant]
     Route: 048
     Dates: start: 20051213
  7. KREDEX [Concomitant]
     Route: 048
     Dates: start: 20051213
  8. PEVARYL [Concomitant]
     Route: 061
     Dates: start: 20060109, end: 20060129
  9. RISPERDAL [Concomitant]
     Route: 048
     Dates: start: 20060116, end: 20060119
  10. RISPERDAL [Concomitant]
     Route: 048
     Dates: start: 20060120, end: 20060120
  11. RISPERDAL [Concomitant]
     Route: 048
     Dates: start: 20060121
  12. STILNOX [Concomitant]
     Route: 048
     Dates: start: 20060103
  13. VASTAREL [Concomitant]
     Route: 048
     Dates: start: 20051213

REACTIONS (3)
  - DEHYDRATION [None]
  - DIARRHOEA [None]
  - VOMITING [None]
